FAERS Safety Report 5889064-6 (Version None)
Quarter: 2008Q3

REPORT INFORMATION
  Report Type: 
  Country: None (occurrence: None)
  Receive Date: 20080919
  Receipt Date: 20071219
  Transmission Date: 20090109
  Serious: No
  Sender: FDA-Public Use
  Company Number: US-KINGPHARMUSA00001-K200701635

PATIENT

DRUGS (2)
  1. SONATA [Suspect]
     Indication: INSOMNIA
     Route: 048
     Dates: start: 20071001, end: 20071001
  2. ADVIL LIQUI-GELS [Concomitant]
     Dosage: UNK, PRN

REACTIONS (4)
  - DRUG INEFFECTIVE [None]
  - FEELING ABNORMAL [None]
  - MIDDLE INSOMNIA [None]
  - NIGHTMARE [None]
